FAERS Safety Report 24124410 (Version 1)
Quarter: 2024Q3

REPORT INFORMATION
  Report Type: Spontaneous
  Country: FR (occurrence: FR)
  Receive Date: 20240723
  Receipt Date: 20240723
  Transmission Date: 20241017
  Serious: Yes (Life-Threatening, Other)
  Sender: ROCHE
  Company Number: None

PATIENT
  Age: 49 Year
  Sex: Male

DRUGS (11)
  1. VALGANCICLOVIR [Suspect]
     Active Substance: VALGANCICLOVIR
     Indication: Antiviral prophylaxis
     Route: 048
     Dates: start: 20240612
  2. CELLCEPT [Suspect]
     Active Substance: MYCOPHENOLATE MOFETIL
     Indication: Liver transplant
     Dosage: 500 MG TWICE A DAY (BID)
     Route: 048
     Dates: start: 20240612
  3. TACROLIMUS [Suspect]
     Active Substance: TACROLIMUS
     Indication: Liver transplant
     Dosage: 2.5 MG 2 FOIS PAR JOUR
     Route: 048
     Dates: start: 20240614
  4. RIFAXIMIN [Concomitant]
     Active Substance: RIFAXIMIN
     Dosage: 2 CPS/D
     Route: 065
  5. LACTULOSE [Concomitant]
     Active Substance: LACTULOSE
     Dosage: 1 SACHET MORNING NOON; BID
     Route: 065
  6. ACETAMINOPHEN [Concomitant]
     Active Substance: ACETAMINOPHEN
     Dosage: UP TO 4X/D IF NECESSARY
     Route: 065
  7. FLUCONAZOLE [Concomitant]
     Active Substance: FLUCONAZOLE
     Dosage: IN THE MORNING
     Route: 065
     Dates: end: 20240521
  8. LANSOPRAZOLE [Concomitant]
     Active Substance: LANSOPRAZOLE
     Dosage: 15MG EVENING
     Route: 065
  9. HYDROXYZINE [Concomitant]
     Active Substance: HYDROXYZINE HYDROCHLORIDE
     Dosage: 25MG EVENING
     Route: 065
  10. NICOPATCH [Concomitant]
     Active Substance: NICOTINE
     Dosage: 21 MG/24H
     Route: 065
  11. Dexeryl [Concomitant]
     Dosage: 1 SKIN APPLICATION/DAY
     Route: 061

REACTIONS (5)
  - Hyponatraemia [Not Recovered/Not Resolved]
  - Delirium [Unknown]
  - Abnormal behaviour [Not Recovered/Not Resolved]
  - Metabolic acidosis [Not Recovered/Not Resolved]
  - Acute kidney injury [Not Recovered/Not Resolved]

NARRATIVE: CASE EVENT DATE: 20240619
